FAERS Safety Report 15571215 (Version 1)
Quarter: 2018Q4

REPORT INFORMATION
  Report Type: Spontaneous
  Country: US (occurrence: US)
  Receive Date: 20181031
  Receipt Date: 20181031
  Transmission Date: 20190205
  Serious: No
  Sender: FDA-Public Use
  Company Number: None

PATIENT
  Age: 24 Year
  Sex: Female

DRUGS (1)
  1. MORPHINE SULFATE PF 1MG/ML 5 X 10ML [Suspect]
     Active Substance: MORPHINE SULFATE
     Indication: ANALGESIC THERAPY
     Dates: start: 20181024, end: 20181024

REACTIONS (1)
  - Pruritus [None]

NARRATIVE: CASE EVENT DATE: 20181024
